FAERS Safety Report 20896039 (Version 1)
Quarter: 2022Q2

REPORT INFORMATION
  Report Type: Spontaneous
  Country: JP (occurrence: None)
  Receive Date: 20220531
  Receipt Date: 20220531
  Transmission Date: 20220721
  Serious: Yes (Death, Hospitalization)
  Sender: FDA-Public Use
  Company Number: 2022A038404

PATIENT
  Age: 65 Year
  Sex: Male
  Weight: 64 kg

DRUGS (1)
  1. IMFINZI [Suspect]
     Active Substance: DURVALUMAB
     Indication: Non-small cell lung cancer
     Route: 041
     Dates: start: 20211028, end: 20211028

REACTIONS (1)
  - Pulmonary toxicity [Fatal]

NARRATIVE: CASE EVENT DATE: 20211115
